FAERS Safety Report 25832989 (Version 1)
Quarter: 2025Q3

REPORT INFORMATION
  Report Type: Spontaneous
  Country: TW (occurrence: TW)
  Receive Date: 20250922
  Receipt Date: 20250922
  Transmission Date: 20251020
  Serious: Yes (Life-Threatening)
  Sender: MYLAN
  Company Number: TW-MYLANLABS-2025M1080455

PATIENT
  Age: 80 Year
  Sex: Female
  Weight: 57.7 kg

DRUGS (19)
  1. ZOLOFT [Suspect]
     Active Substance: SERTRALINE HYDROCHLORIDE
     Indication: Dementia
     Dates: start: 20250815, end: 20250821
  2. SEROQUEL [Suspect]
     Active Substance: QUETIAPINE FUMARATE
     Indication: Dementia
     Dosage: 37.5 MILLIGRAM, QD
     Dates: start: 20250815, end: 20250821
  3. XANAX [Concomitant]
     Active Substance: ALPRAZOLAM
     Indication: Insomnia
     Dosage: 0.5 MILLIGRAM, QD
     Dates: start: 20250814, end: 20250821
  4. PIPERACILLIN SODIUM\TAZOBACTAM SODIUM [Concomitant]
     Active Substance: PIPERACILLIN SODIUM\TAZOBACTAM SODIUM
     Dosage: 4000 MILLIGRAM, Q6H
     Dates: start: 20250814, end: 20250823
  5. FENOFIBRATE [Concomitant]
     Active Substance: FENOFIBRATE
     Indication: Hyperlipidaemia
     Dates: start: 20250814, end: 20250821
  6. CRESTOR [Concomitant]
     Active Substance: ROSUVASTATIN CALCIUM
     Indication: Hyperlipidaemia
     Dosage: UNK
     Dates: start: 20250814, end: 20250821
  7. Purfen [Concomitant]
     Indication: Pyrexia
     Dates: start: 20250815, end: 20250815
  8. Acetal [Concomitant]
     Indication: Pyrexia
     Dates: start: 20250815, end: 20250908
  9. Colirocin [Concomitant]
     Indication: Pneumonia
     Dosage: 500 MILLIGRAM, BID
     Dates: start: 20250815, end: 20250821
  10. COMBIVENT [Concomitant]
     Active Substance: ALBUTEROL SULFATE\IPRATROPIUM BROMIDE
     Indication: Dyspnoea
     Dosage: UNK, Q6H
     Dates: start: 20250818, end: 20250819
  11. BISOPROLOL FUMARATE [Concomitant]
     Active Substance: BISOPROLOL FUMARATE
     Indication: Hypertension
     Dosage: 1.25 MILLIGRAM, QD
     Dates: start: 20250818, end: 20250821
  12. LASIX [Concomitant]
     Active Substance: FUROSEMIDE
     Indication: Pleural effusion
     Dates: start: 20250818, end: 20250818
  13. Millisrol [Concomitant]
     Indication: Hypertension
     Dosage: 5 MILLIGRAM, QD
     Dates: start: 20250818, end: 20250821
  14. NOVORAPID [Concomitant]
     Active Substance: INSULIN ASPART
     Indication: Hyperglycaemia
     Dates: start: 20250818, end: 20250821
  15. Ceporin [Concomitant]
     Indication: Hypertension
     Dates: start: 20250818, end: 20250821
  16. DIPHENHYDRAMINE HYDROCHLORIDE [Concomitant]
     Active Substance: DIPHENHYDRAMINE HYDROCHLORIDE
     Indication: Antiallergic therapy
     Dates: start: 20250819, end: 20250822
  17. Rasitol [Concomitant]
     Indication: Pleural effusion
     Dates: start: 20250820, end: 20250820
  18. AMLODIPINE BESYLATE\OLMESARTAN MEDOXOMIL [Concomitant]
     Active Substance: AMLODIPINE BESYLATE\OLMESARTAN MEDOXOMIL
     Indication: Hypertension
  19. LIVALO [Concomitant]
     Active Substance: PITAVASTATIN CALCIUM
     Indication: Hyperlipidaemia

REACTIONS (4)
  - Cardiac arrest [Recovered/Resolved]
  - Hypokalaemia [Recovered/Resolved]
  - Torsade de pointes [Recovered/Resolved]
  - Electrocardiogram QT prolonged [Recovered/Resolved]

NARRATIVE: CASE EVENT DATE: 20250821
